FAERS Safety Report 17298740 (Version 5)
Quarter: 2020Q2

REPORT INFORMATION
  Report Type: Report from Study
  Country: None (occurrence: AU)
  Receive Date: 20200121
  Receipt Date: 20200618
  Transmission Date: 20200713
  Serious: Yes (Hospitalization, Other)
  Sender: FDA-Public Use
  Company Number: AU-ABBVIE-20P-008-3232211-00

PATIENT
  Age: 52 Year
  Sex: Female

DRUGS (41)
  1. NORMAL SALINE SOLUTION (0.9% SODIUM CHLORIDE) [Concomitant]
     Indication: PROPHYLAXIS
     Route: 042
     Dates: start: 20181227, end: 20181228
  2. HYDROCORTISONE CREAM [Concomitant]
     Active Substance: HYDROCORTISONE
     Indication: RASH MACULO-PAPULAR
     Dosage: DOSE: CREAM
     Route: 061
     Dates: start: 20190123, end: 20190123
  3. PREDNISONE. [Concomitant]
     Active Substance: PREDNISONE
     Route: 048
     Dates: start: 20190504, end: 20190505
  4. PREDNISONE. [Concomitant]
     Active Substance: PREDNISONE
     Route: 048
     Dates: start: 20190528, end: 20190531
  5. PREDNISONE. [Concomitant]
     Active Substance: PREDNISONE
     Route: 048
     Dates: start: 20190619, end: 20190625
  6. RASBURICASE [Concomitant]
     Active Substance: RASBURICASE
     Route: 042
     Dates: start: 20190111, end: 20190111
  7. PREDNISONE. [Concomitant]
     Active Substance: PREDNISONE
     Indication: URTICARIA
     Route: 048
     Dates: start: 20190306, end: 20190308
  8. LORATADINE. [Concomitant]
     Active Substance: LORATADINE
     Indication: URTICARIA
     Route: 048
     Dates: start: 20190308
  9. RASBURICASE [Concomitant]
     Active Substance: RASBURICASE
     Indication: PROPHYLAXIS
     Route: 042
     Dates: start: 20181224, end: 20181224
  10. PREDNISONE. [Concomitant]
     Active Substance: PREDNISONE
     Route: 048
     Dates: start: 20190314, end: 20190325
  11. PREDNISONE. [Concomitant]
     Active Substance: PREDNISONE
     Route: 048
     Dates: start: 20190406, end: 20190407
  12. PREDNISONE. [Concomitant]
     Active Substance: PREDNISONE
     Route: 048
     Dates: start: 20190412, end: 20190412
  13. PREDNISONE. [Concomitant]
     Active Substance: PREDNISONE
     Route: 048
     Dates: start: 20190424, end: 20190426
  14. PREDNISONE. [Concomitant]
     Active Substance: PREDNISONE
     Route: 048
     Dates: start: 20190427, end: 20190503
  15. PREDNISONE. [Concomitant]
     Active Substance: PREDNISONE
     Route: 048
     Dates: start: 20190626, end: 20190703
  16. VENETOCLAX. [Suspect]
     Active Substance: VENETOCLAX
     Indication: CHRONIC LYMPHOCYTIC LEUKAEMIA
     Route: 048
     Dates: start: 20181227
  17. RASBURICASE [Concomitant]
     Active Substance: RASBURICASE
     Route: 042
     Dates: start: 20190103, end: 20190103
  18. RASBURICASE [Concomitant]
     Active Substance: RASBURICASE
     Route: 042
     Dates: start: 20190130, end: 20190130
  19. RIVAROXABAN [Concomitant]
     Active Substance: RIVAROXABAN
     Indication: DEEP VEIN THROMBOSIS
     Route: 048
     Dates: start: 20181026
  20. TOPIRAMATE. [Concomitant]
     Active Substance: TOPIRAMATE
     Indication: MIGRAINE PROPHYLAXIS
     Route: 048
     Dates: start: 2010
  21. PREDNISONE. [Concomitant]
     Active Substance: PREDNISONE
     Route: 048
     Dates: start: 20190326, end: 20190328
  22. PREDNISONE. [Concomitant]
     Active Substance: PREDNISONE
     Route: 048
     Dates: start: 20190329, end: 20190402
  23. PREDNISONE. [Concomitant]
     Active Substance: PREDNISONE
     Route: 048
     Dates: start: 20190523, end: 20190524
  24. RASBURICASE [Concomitant]
     Active Substance: RASBURICASE
     Route: 042
     Dates: start: 20190124, end: 20190124
  25. BETAMETHASONE CREAM [Concomitant]
     Indication: RASH MACULO-PAPULAR
     Route: 061
     Dates: start: 20190125, end: 20190130
  26. PREDNISONE. [Concomitant]
     Active Substance: PREDNISONE
     Route: 048
     Dates: start: 20190309, end: 20190310
  27. PREDNISONE. [Concomitant]
     Active Substance: PREDNISONE
     Route: 048
     Dates: start: 20190408, end: 20190411
  28. RASBURICASE [Concomitant]
     Active Substance: RASBURICASE
     Route: 042
     Dates: start: 20190117, end: 20190117
  29. MAGNESIUM ASPARTATE [Concomitant]
     Active Substance: MAGNESIUM ASPARTATE
     Indication: MUSCLE SPASMS
     Route: 048
     Dates: start: 20181005
  30. HYDROCORTISONE CREAM [Concomitant]
     Active Substance: HYDROCORTISONE
     Route: 061
     Dates: start: 20190313
  31. BETAMETHASONE CREAM [Concomitant]
     Route: 061
     Dates: start: 20190308
  32. PREDNISONE. [Concomitant]
     Active Substance: PREDNISONE
     Route: 048
     Dates: start: 20190422, end: 20190423
  33. PREDNISONE. [Concomitant]
     Active Substance: PREDNISONE
     Route: 048
     Dates: start: 20190525, end: 20190527
  34. PREDNISONE. [Concomitant]
     Active Substance: PREDNISONE
     Route: 048
     Dates: start: 20190601, end: 20190603
  35. PREDNISONE. [Concomitant]
     Active Substance: PREDNISONE
     Route: 048
     Dates: start: 20190704
  36. PREDNISONE. [Concomitant]
     Active Substance: PREDNISONE
     Route: 048
     Dates: start: 20190403, end: 20190405
  37. PREDNISONE. [Concomitant]
     Active Substance: PREDNISONE
     Route: 048
     Dates: start: 20190417, end: 20190418
  38. PREDNISONE. [Concomitant]
     Active Substance: PREDNISONE
     Route: 048
     Dates: start: 20190419, end: 20190421
  39. PREDNISONE. [Concomitant]
     Active Substance: PREDNISONE
     Route: 048
     Dates: start: 20190506, end: 20190522
  40. PREDNISONE. [Concomitant]
     Active Substance: PREDNISONE
     Route: 048
     Dates: start: 20190604, end: 20190618
  41. FAMCICLOVIR. [Concomitant]
     Active Substance: FAMCICLOVIR
     Indication: HERPES ZOSTER
     Dosage: FREQUENCY: TDS
     Route: 048
     Dates: start: 20200107, end: 20200113

REACTIONS (1)
  - Herpes zoster [Not Recovered/Not Resolved]

NARRATIVE: CASE EVENT DATE: 20200113
